FAERS Safety Report 25275292 (Version 1)
Quarter: 2025Q2

REPORT INFORMATION
  Report Type: Spontaneous
  Country: US (occurrence: US)
  Receive Date: 20250506
  Receipt Date: 20250506
  Transmission Date: 20250716
  Serious: No
  Sender: VERTEX
  Company Number: US-VERTEX PHARMACEUTICALS-2025-006868

PATIENT

DRUGS (6)
  1. JOURNAVX [Suspect]
     Active Substance: SUZETRIGINE
     Indication: Back pain
     Dosage: 1 DOSAGE FORM, BID (AS INSTRUCTED AN HOUR BEFORE EATING)
     Route: 048
     Dates: start: 202504, end: 202504
  2. JOURNAVX [Suspect]
     Active Substance: SUZETRIGINE
     Indication: Arthralgia
  3. JOURNAVX [Suspect]
     Active Substance: SUZETRIGINE
     Indication: Occipital neuralgia
  4. JOURNAVX [Suspect]
     Active Substance: SUZETRIGINE
     Indication: Trigeminal neuralgia
  5. JOURNAVX [Suspect]
     Active Substance: SUZETRIGINE
     Indication: Musculoskeletal pain
  6. BACLOFEN [Concomitant]
     Active Substance: BACLOFEN
     Indication: Trigeminal neuralgia

REACTIONS (3)
  - Abdominal pain upper [Not Recovered/Not Resolved]
  - Nausea [Not Recovered/Not Resolved]
  - Off label use [Unknown]

NARRATIVE: CASE EVENT DATE: 20250401
